FAERS Safety Report 5504328-3 (Version None)
Quarter: 2007Q4

REPORT INFORMATION
  Report Type: 
  Country: None (occurrence: None)
  Receive Date: 20071101
  Receipt Date: 20071023
  Transmission Date: 20080405
  Serious: Yes (Other)
  Sender: FDA-Public Use
  Company Number: US-PFIZER INC-2007089309

PATIENT
  Sex: Female

DRUGS (1)
  1. GEODON [Suspect]
     Dates: start: 20070701, end: 20071022

REACTIONS (6)
  - ACTIVITIES OF DAILY LIVING IMPAIRED [None]
  - AKINESIA [None]
  - BAROTITIS MEDIA [None]
  - DYSARTHRIA [None]
  - DYSPHAGIA [None]
  - PARANASAL SINUS HYPERSECRETION [None]
